FAERS Safety Report 11665266 (Version 3)
Quarter: 2016Q1

REPORT INFORMATION
  Report Type: Report from Study
  Country: JP (occurrence: JP)
  Receive Date: 20151027
  Receipt Date: 20160229
  Transmission Date: 20160525
  Serious: Yes (Hospitalization)
  Sender: FDA-Public Use
  Company Number: JP-TEVA-601692ISR

PATIENT
  Age: 74 Year
  Sex: Male
  Weight: 43.1 kg

DRUGS (19)
  1. COMTAN [Concomitant]
     Active Substance: ENTACAPONE
     Dates: start: 20150801
  2. TRERIEF [Concomitant]
     Active Substance: ZONISAMIDE
     Dates: start: 20150801
  3. NOURIAST [Concomitant]
     Active Substance: ISTRADEFYLLINE
     Dosage: ONGOING
  4. GASMOTIN [Concomitant]
     Active Substance: MOSAPRIDE CITRATE
     Dates: end: 20151008
  5. MUCOSTA [Concomitant]
     Active Substance: REBAMIPIDE
     Dates: end: 20151008
  6. METLIGINE [Concomitant]
     Active Substance: MIDODRINE HYDROCHLORIDE
  7. KENEI ENEMA [Concomitant]
  8. FERROMIA [Concomitant]
     Active Substance: FERROUS CITRATE
     Dosage: ONGOING
  9. PLETAAL [Concomitant]
     Active Substance: CILOSTAZOL
     Dates: end: 20151008
  10. LANDSEN [Concomitant]
     Active Substance: CLONAZEPAM
     Dosage: ONGOING
  11. CILOSTAZOL. [Concomitant]
     Active Substance: CILOSTAZOL
     Dates: start: 20151009
  12. DOPS [Concomitant]
     Active Substance: DROXIDOPA
     Dates: start: 20151009
  13. MAGMITT [Concomitant]
     Active Substance: MAGNESIUM OXIDE
     Dosage: ONGOING
  14. MENESIT [Concomitant]
     Active Substance: CARBIDOPA\LEVODOPA
     Dates: start: 20150801
  15. REBAMIPIDE [Concomitant]
     Active Substance: REBAMIPIDE
     Dates: start: 20151009
  16. MOSAPRIDE CITRATE [Concomitant]
     Active Substance: MOSAPRIDE CITRATE
     Dates: start: 20151009
  17. RASAGILINE MESILATE [Suspect]
     Active Substance: RASAGILINE MESYLATE
     Indication: PARKINSON^S DISEASE
     Dosage: 1 MILLIGRAM DAILY;
     Route: 048
     Dates: start: 20150801, end: 20151016
  18. EDIROL [Concomitant]
     Active Substance: ELDECALCITOL
     Dosage: ONGOING
  19. CINAL [Concomitant]
     Active Substance: ASCORBIC ACID\CALCIUM PANTOTHENATE
     Dosage: EXCEPT (DPO)

REACTIONS (1)
  - Decreased activity [Recovered/Resolved]

NARRATIVE: CASE EVENT DATE: 20151008
